FAERS Safety Report 4484284-X (Version None)
Quarter: 2004Q4

REPORT INFORMATION
  Report Type: 
  Country: None (occurrence: None)
  Receive Date: 20041025
  Receipt Date: 20041014
  Transmission Date: 20050328
  Serious: Yes (Other)
  Sender: FDA-Public Use
  Company Number: US-JNJFOC-20041004881

PATIENT
  Age: 33 Year
  Sex: Female

DRUGS (1)
  1. TOPAMAX [Suspect]
     Route: 049

REACTIONS (2)
  - EYELID PTOSIS [None]
  - HYPOAESTHESIA [None]
